FAERS Safety Report 9469613 (Version 2)
Quarter: 2013Q3

REPORT INFORMATION
  Report Type: Spontaneous
  Country: US (occurrence: US)
  Receive Date: 20130822
  Receipt Date: 20130916
  Transmission Date: 20140515
  Serious: Yes (Hospitalization)
  Sender: FDA-Public Use
  Company Number: US-BRISTOL-MYERS SQUIBB COMPANY-19188523

PATIENT
  Age: 64 Year
  Sex: Female
  Weight: 58.96 kg

DRUGS (3)
  1. BYETTA PEN DISPOSABLE [Suspect]
     Indication: TYPE 2 DIABETES MELLITUS
     Route: 058
     Dates: start: 2007
  2. METFORMIN HCL [Suspect]
  3. ASPIRIN [Suspect]

REACTIONS (3)
  - Gastrointestinal haemorrhage [Recovering/Resolving]
  - Diverticulitis intestinal haemorrhagic [Unknown]
  - Blood glucose increased [Recovering/Resolving]
